FAERS Safety Report 21860286 (Version 2)
Quarter: 2023Q1

REPORT INFORMATION
  Report Type: Spontaneous
  Country: US (occurrence: US)
  Receive Date: 20230113
  Receipt Date: 20230210
  Transmission Date: 20230417
  Serious: Yes (Other)
  Sender: FDA-Public Use
  Company Number: US-PFIZER INC-PV202300005075

PATIENT
  Age: 69 Year
  Sex: Male

DRUGS (1)
  1. PAXLOVID [Suspect]
     Active Substance: NIRMATRELVIR\RITONAVIR
     Indication: COVID-19 treatment
     Dosage: UNK

REACTIONS (8)
  - Mental impairment [Unknown]
  - COVID-19 [Unknown]
  - Disease recurrence [Unknown]
  - Hypersomnia [Unknown]
  - Dyspnoea exertional [Unknown]
  - Memory impairment [Unknown]
  - Feeling abnormal [Unknown]
  - Exercise tolerance decreased [Unknown]

NARRATIVE: CASE EVENT DATE: 20221201
